FAERS Safety Report 5931549-8 (Version None)
Quarter: 2008Q4

REPORT INFORMATION
  Report Type: 
  Country: None (occurrence: None)
  Receive Date: 20081027
  Receipt Date: 20081020
  Transmission Date: 20090506
  Serious: Yes (Hospitalization)
  Sender: FDA-Public Use
  Company Number: B0542483A

PATIENT
  Age: 49 Year
  Sex: Female

DRUGS (2)
  1. LAPATINIB [Suspect]
     Dosage: 1250MG PER DAY
     Route: 048
     Dates: start: 20080703
  2. CAPECITABINE [Suspect]
     Dosage: 2300MG PER DAY
     Route: 048
     Dates: start: 20080703

REACTIONS (1)
  - DEEP VEIN THROMBOSIS [None]
